FAERS Safety Report 9422466 (Version 1)
Quarter: 2013Q3

REPORT INFORMATION
  Report Type: Spontaneous
  Country: US (occurrence: None)
  Receive Date: 20130725
  Receipt Date: 20130725
  Transmission Date: 20140515
  Serious: Yes (Disabling, Other)
  Sender: FDA-Public Use
  Company Number: None

PATIENT
  Age: 50 Year
  Sex: Female
  Weight: 54.43 kg

DRUGS (4)
  1. TRAMADOL HCL [Suspect]
     Indication: PAIN
     Route: 048
     Dates: start: 20120127
  2. CYCLOBENZAPINE [Concomitant]
  3. DIAZEPAM [Concomitant]
  4. IBUPROPHEN [Concomitant]

REACTIONS (4)
  - Anxiety [None]
  - Depression [None]
  - Feeling abnormal [None]
  - Gait disturbance [None]
